FAERS Safety Report 5530537-3 (Version None)
Quarter: 2007Q4

REPORT INFORMATION
  Report Type: 
  Country: None (occurrence: None)
  Receive Date: 20071130
  Receipt Date: 20071120
  Transmission Date: 20080405
  Serious: Yes (Other)
  Sender: FDA-Public Use
  Company Number: FR-JNJFOC-20070804256

PATIENT
  Sex: Female

DRUGS (3)
  1. PREZISTA [Suspect]
     Indication: HIV INFECTION
     Dosage: TAKEN FOR 3 WEEKS
     Route: 048
  2. NORVIR [Concomitant]
     Indication: HIV INFECTION
     Route: 048
  3. COMBIVIR [Concomitant]
     Indication: HIV INFECTION
     Route: 048

REACTIONS (5)
  - ABDOMINAL PAIN [None]
  - ASTHENIA [None]
  - FLATULENCE [None]
  - PETIT MAL EPILEPSY [None]
  - SOMNOLENCE [None]
